FAERS Safety Report 16106591 (Version 1)
Quarter: 2019Q1

REPORT INFORMATION
  Report Type: Report from Study
  Country: US (occurrence: US)
  Receive Date: 20190322
  Receipt Date: 20190322
  Transmission Date: 20190418
  Serious: Yes (Death, Hospitalization)
  Sender: FDA-Public Use
  Company Number: PHHY2019US064573

PATIENT
  Age: 76 Year
  Sex: Female

DRUGS (2)
  1. TRAMETINIB [Suspect]
     Active Substance: TRAMETINIB
     Indication: NON-SMALL CELL LUNG CANCER
     Dosage: UNK
     Route: 065
     Dates: start: 20190208
  2. PONATINIB [Suspect]
     Active Substance: PONATINIB
     Indication: NON-SMALL CELL LUNG CANCER
     Dosage: UNK
     Route: 065
     Dates: start: 20190208

REACTIONS (11)
  - Pulmonary congestion [Unknown]
  - Streptococcus test positive [Unknown]
  - Pyrexia [Not Recovered/Not Resolved]
  - Lung consolidation [Unknown]
  - Pleural effusion [Unknown]
  - Dyspnoea [Unknown]
  - Respiratory failure [Fatal]
  - Influenza B virus test positive [Unknown]
  - Atrial fibrillation [Not Recovered/Not Resolved]
  - Upper respiratory tract infection [Unknown]
  - Atelectasis [Unknown]

NARRATIVE: CASE EVENT DATE: 20190221
